FAERS Safety Report 22199082 (Version 3)
Quarter: 2023Q2

REPORT INFORMATION
  Report Type: Other
  Country: CA (occurrence: CA)
  Receive Date: 20230411
  Receipt Date: 20230518
  Transmission Date: 20230721
  Serious: Yes (Hospitalization, Other)
  Sender: FDA-Public Use
  Company Number: CA-CELLTRION INC.-2023CA006713

PATIENT

DRUGS (20)
  1. RITUXIMAB [Suspect]
     Active Substance: RITUXIMAB
     Indication: Granulomatosis with polyangiitis
     Dosage: 1 EVERY 1 WEEKS
     Route: 042
  2. RITUXIMAB [Suspect]
     Active Substance: RITUXIMAB
     Indication: Vasculitis
     Dosage: 725.0 MILLIGRAM, 1 EVERY 1 WEEKS
     Route: 042
  3. RITUXIMAB [Suspect]
     Active Substance: RITUXIMAB
     Dosage: 1000.0 MILLIGRAM
     Route: 042
  4. RITUXIMAB [Suspect]
     Active Substance: RITUXIMAB
     Dosage: 500.0 MILLIGRAM
     Route: 042
  5. ACETAMINOPHEN [Concomitant]
     Active Substance: ACETAMINOPHEN
     Dosage: 650.0 MILLIGRAM
     Route: 048
  6. AMLODIPINE BESYLATE [Concomitant]
     Active Substance: AMLODIPINE BESYLATE
  7. CALCIUM [Concomitant]
     Active Substance: CALCIUM
  8. DIPHENHYDRAMINE HYDROCHLORIDE [Concomitant]
     Active Substance: DIPHENHYDRAMINE HYDROCHLORIDE
     Dosage: 50.0 MILLIGRAM
     Route: 048
  9. MEDROL [Concomitant]
     Active Substance: METHYLPREDNISOLONE
     Dosage: 4.0 MILLIGRAM
     Route: 065
  10. METHYLPREDNISOLONE [Concomitant]
     Active Substance: METHYLPREDNISOLONE
     Dosage: 100.0 MILLIGRAM
     Route: 042
  11. METOPROLOL [Concomitant]
     Active Substance: METOPROLOL
  12. MORPHINE [Concomitant]
     Active Substance: MORPHINE
  13. NAPROXEN [Concomitant]
     Active Substance: NAPROXEN
  14. PANTOPRAZOLE [Concomitant]
     Active Substance: PANTOPRAZOLE
  15. PREDNISONE [Concomitant]
     Active Substance: PREDNISONE
     Dosage: 60.0 MILLIGRAM
     Route: 065
  16. PREVACID [Concomitant]
     Active Substance: LANSOPRAZOLE
     Dosage: UNK
  17. RISEDRONATE SODIUM [Concomitant]
     Active Substance: RISEDRONATE SODIUM
  18. SUBOXONE [Concomitant]
     Active Substance: BUPRENORPHINE HYDROCHLORIDE\NALOXONE HYDROCHLORIDE
     Dosage: 8.0 MILLIGRAM
     Route: 065
  19. SULFATRIM [Concomitant]
     Active Substance: SULFAMETHOXAZOLE\TRIMETHOPRIM
  20. TICAGRELOR [Concomitant]
     Active Substance: TICAGRELOR

REACTIONS (2)
  - Heart rate decreased [Unknown]
  - Myocardial infarction [Unknown]
